FAERS Safety Report 9660086 (Version 1)
Quarter: 2013Q4

REPORT INFORMATION
  Report Type: Report from Study
  Country: US (occurrence: US)
  Receive Date: 20131031
  Receipt Date: 20131031
  Transmission Date: 20140711
  Serious: Yes (Other)
  Sender: FDA-Public Use
  Company Number: US-JNJFOC-20131016486

PATIENT
  Sex: Female

DRUGS (9)
  1. REMICADE [Suspect]
     Indication: OSTEOARTHRITIS
     Route: 042
  2. REMICADE [Suspect]
     Indication: OSTEOARTHRITIS
     Route: 042
     Dates: start: 201210, end: 201210
  3. REMICADE [Suspect]
     Indication: RHEUMATOID ARTHRITIS
     Route: 042
  4. REMICADE [Suspect]
     Indication: RHEUMATOID ARTHRITIS
     Route: 042
     Dates: start: 201210, end: 201210
  5. VITAMIN D [Concomitant]
     Route: 048
     Dates: start: 2012, end: 2012
  6. HYDROCODONE [Concomitant]
     Indication: PAIN
     Dosage: 1-2 TABLETS AS NEEDED
     Route: 048
  7. CALCIUM CITRATE + VITAMIN D [Concomitant]
     Route: 065
     Dates: start: 2006
  8. CYCLOBENZAPRINE HCL [Concomitant]
     Route: 048
     Dates: start: 2006
  9. ATORVASTATIN [Concomitant]
     Indication: ARTERIAL DISORDER
     Route: 048
     Dates: start: 2013

REACTIONS (5)
  - Glaucoma [Not Recovered/Not Resolved]
  - Cataract [Recovered/Resolved]
  - Eyelid ptosis [Not Recovered/Not Resolved]
  - Arterial occlusive disease [Unknown]
  - Coronary artery occlusion [Not Recovered/Not Resolved]
